FAERS Safety Report 20949421 (Version 1)
Quarter: 2022Q2

REPORT INFORMATION
  Report Type: Report from Study
  Country: FR (occurrence: FR)
  Receive Date: 20220613
  Receipt Date: 20220613
  Transmission Date: 20220720
  Serious: Yes (Other)
  Sender: FDA-Public Use
  Company Number: FR-TAKEDA-2022TUS038279

PATIENT
  Age: 54 Year
  Sex: Male

DRUGS (8)
  1. TEDUGLUTIDE [Suspect]
     Active Substance: TEDUGLUTIDE
     Indication: Short-bowel syndrome
     Dosage: 4.2 MILLIGRAM, QD
     Route: 042
     Dates: start: 20170411, end: 201808
  2. TEDUGLUTIDE [Suspect]
     Active Substance: TEDUGLUTIDE
     Indication: Short-bowel syndrome
     Dosage: 4.2 MILLIGRAM, QD
     Route: 042
     Dates: start: 20170411, end: 201808
  3. TEDUGLUTIDE [Suspect]
     Active Substance: TEDUGLUTIDE
     Indication: Short-bowel syndrome
     Dosage: 4.2 MILLIGRAM, QD
     Route: 042
     Dates: start: 20170411, end: 201808
  4. TEDUGLUTIDE [Suspect]
     Active Substance: TEDUGLUTIDE
     Indication: Short-bowel syndrome
     Dosage: 4.2 MILLIGRAM, QD
     Route: 042
     Dates: start: 20170411, end: 201808
  5. ZINC [Concomitant]
     Active Substance: ZINC
     Indication: Mineral supplementation
     Dosage: 30 MILLIGRAM, QD
     Route: 048
     Dates: start: 202006, end: 202007
  6. POTASSIUM CHLORIDE [Concomitant]
     Active Substance: POTASSIUM CHLORIDE
     Indication: Hypokalaemia
     Dosage: 9 DOSAGE FORM, QD
     Route: 048
     Dates: start: 202006
  7. FOLIC ACID [Concomitant]
     Active Substance: FOLIC ACID
     Indication: Vitamin supplementation
     Dosage: 5 MILLIGRAM, BID
     Route: 048
     Dates: start: 201912, end: 202001
  8. VITAMIN B12 [Concomitant]
     Active Substance: CYANOCOBALAMIN
     Indication: Vitamin supplementation
     Dosage: 1 MILLIGRAM
     Route: 030
     Dates: start: 201212

REACTIONS (2)
  - Hypokalaemia [Not Recovered/Not Resolved]
  - Diarrhoea [Not Recovered/Not Resolved]

NARRATIVE: CASE EVENT DATE: 20210501
